FAERS Safety Report 5040465-8 (Version None)
Quarter: 2006Q2

REPORT INFORMATION
  Report Type: 
  Country: None (occurrence: None)
  Receive Date: 20060630
  Receipt Date: 20060626
  Transmission Date: 20061013
  Serious: Yes (Life-Threatening, Other)
  Sender: FDA-Public Use
  Company Number: ZA-BRISTOL-MYERS SQUIBB COMPANY-13424817

PATIENT
  Age: 2 Year
  Sex: Male
  Weight: 11 kg

DRUGS (7)
  1. ATAZANAVIR [Suspect]
     Indication: HIV INFECTION
     Dosage: INTERRUPTED ON 19-JUN-2006
     Route: 048
     Dates: start: 20050811
  2. STAVUDINE [Suspect]
     Indication: HIV INFECTION
     Dosage: INTERRUPTED ON 19-JUN-2006
     Route: 048
     Dates: start: 20050811
  3. LAMIVUDINE [Suspect]
     Indication: HIV INFECTION
     Dosage: INTERRUPTED ON 19-JUN-2006
     Route: 048
     Dates: start: 20050811
  4. RITONAVIR [Suspect]
     Indication: HIV INFECTION
     Dosage: INTERRUPTED ON 19-JUN-2006
     Route: 048
     Dates: start: 20050811
  5. BACTRIM [Concomitant]
  6. MULTI-VITAMIN [Concomitant]
  7. EXOCINE [Concomitant]

REACTIONS (3)
  - ALANINE AMINOTRANSFERASE INCREASED [None]
  - ASPARTATE AMINOTRANSFERASE INCREASED [None]
  - GAMMA-GLUTAMYLTRANSFERASE INCREASED [None]
